FAERS Safety Report 15205816 (Version 1)
Quarter: 2018Q3

REPORT INFORMATION
  Report Type: Other
  Country: PL (occurrence: PL)
  Receive Date: 20180727
  Receipt Date: 20180727
  Transmission Date: 20181010
  Serious: Yes (Life-Threatening, Other)
  Sender: FDA-Public Use
  Company Number: PL-DENTSPLY-2018SCDP000305

PATIENT
  Age: 5 Year
  Sex: Female
  Weight: 20 kg

DRUGS (1)
  1. LIDOCAINE HYDROCHLORIDE AND EPINEPHRINE BITARTRATE [Suspect]
     Active Substance: EPINEPHRINE BITARTRATE\LIDOCAINE HYDROCHLORIDE
     Indication: ANAESTHESIA
     Dosage: 1:200,000 INJECTION, LIDOCAINE 1%, THE TOTAL AMOUNT OF ANAESTHETIC WAS 15 ML?7.5 ML ON EACH SIDE

REACTIONS (6)
  - Laryngospasm [Recovered/Resolved]
  - Incorrect dose administered [Recovered/Resolved]
  - Facial paralysis [Recovered/Resolved]
  - Bradycardia [Recovered/Resolved]
  - Vagus nerve paralysis [Recovered/Resolved]
  - Wrong technique in product usage process [Recovered/Resolved]
